FAERS Safety Report 5875540-9 (Version None)
Quarter: 2008Q3

REPORT INFORMATION
  Report Type: 
  Country: None (occurrence: None)
  Receive Date: 20080909
  Receipt Date: 20080904
  Transmission Date: 20090109
  Serious: Yes (Hospitalization)
  Sender: FDA-Public Use
  Company Number: GB-BAYER-200812366BNE

PATIENT
  Age: 77 Year
  Sex: Male

DRUGS (6)
  1. ASPIRIN [Suspect]
     Indication: PROPHYLAXIS
     Route: 048
     Dates: end: 20080815
  2. DICLOFENAC [Suspect]
     Indication: PAIN
     Dosage: TOTAL DAILY DOSE: 150 MG
     Route: 065
     Dates: end: 20080815
  3. ACETAMINOPHEN W/ CODEINE [Concomitant]
     Indication: PAIN
     Route: 048
  4. LANSOPRAZOLE [Concomitant]
     Indication: DRUG USE FOR UNKNOWN INDICATION
     Route: 048
  5. ACETAMINOPHEN [Concomitant]
     Indication: PAIN
     Dosage: TOTAL DAILY DOSE: 4 G
     Route: 048
  6. TERBINAFINE HCL [Concomitant]
     Indication: FUNGAL INFECTION
     Route: 048

REACTIONS (1)
  - RENAL FAILURE ACUTE [None]
